FAERS Safety Report 16938450 (Version 2)
Quarter: 2019Q4

REPORT INFORMATION
  Report Type: Spontaneous
  Country: HU (occurrence: HU)
  Receive Date: 20191019
  Receipt Date: 20191023
  Transmission Date: 20200122
  Serious: Yes (Other)
  Sender: FDA-Public Use
  Company Number: NVSC2019HU007812

PATIENT
  Age: 49 Year
  Sex: Female

DRUGS (7)
  1. GILENYA [Suspect]
     Active Substance: FINGOLIMOD HYDROCHLORIDE
     Indication: RELAPSING-REMITTING MULTIPLE SCLEROSIS
     Dosage: UNK
     Route: 065
     Dates: start: 20170621, end: 20190510
  2. GILENYA [Suspect]
     Active Substance: FINGOLIMOD HYDROCHLORIDE
     Dosage: UNK
     Route: 065
     Dates: end: 201905
  3. DIMETHYL FUMARATE [Concomitant]
     Active Substance: DIMETHYL FUMARATE
     Indication: RELAPSING-REMITTING MULTIPLE SCLEROSIS
     Dosage: UNK
     Route: 065
  4. CARBAMAZEPINE. [Suspect]
     Active Substance: CARBAMAZEPINE
     Indication: TRIGEMINAL NEURALGIA
     Dosage: UNK
     Route: 065
  5. CARBAMAZEPINE. [Suspect]
     Active Substance: CARBAMAZEPINE
     Dosage: UNK
     Route: 065
  6. GABAPENTIN. [Concomitant]
     Active Substance: GABAPENTIN
     Indication: TRIGEMINAL NEURALGIA
     Dosage: UNK
     Route: 065
  7. GLATIRAMER ACETATE. [Concomitant]
     Active Substance: GLATIRAMER ACETATE
     Indication: RELAPSING-REMITTING MULTIPLE SCLEROSIS
     Dosage: UNK
     Route: 065
     Dates: start: 2005, end: 2008

REACTIONS (27)
  - Paraesthesia [Unknown]
  - Facial pain [Unknown]
  - Condition aggravated [Unknown]
  - Ophthalmoplegia [Unknown]
  - JC polyomavirus test positive [Unknown]
  - Pain in extremity [Unknown]
  - Slow speech [Unknown]
  - Pyelonephritis [Unknown]
  - Ataxia [Unknown]
  - Diplopia [Unknown]
  - Hepatic enzyme increased [Unknown]
  - Multiple sclerosis relapse [Unknown]
  - Psychomotor retardation [Unknown]
  - Vision blurred [Unknown]
  - Chronic idiopathic pain syndrome [Unknown]
  - Cerebellar ataxia [Unknown]
  - Relapsing-remitting multiple sclerosis [Unknown]
  - Paraparesis [Unknown]
  - Urinary incontinence [Unknown]
  - Cognitive disorder [Unknown]
  - Gait disturbance [Unknown]
  - Dysphagia [Unknown]
  - Pain of skin [Unknown]
  - Depression [Unknown]
  - Lymphopenia [Unknown]
  - Hemianaesthesia [Unknown]
  - Nystagmus [Unknown]

NARRATIVE: CASE EVENT DATE: 2001
